FAERS Safety Report 6716471-1 (Version None)
Quarter: 2010Q2

REPORT INFORMATION
  Report Type: 
  Country: None (occurrence: None)
  Receive Date: 20100507
  Receipt Date: 20100428
  Transmission Date: 20101027
  Serious: Yes (Hospitalization)
  Sender: FDA-Public Use
  Company Number: PHHO2010JP05132

PATIENT
  Sex: Male
  Weight: 41 kg

DRUGS (5)
  1. BLINDED NO TREATMENT RECEIVED NOMED [Suspect]
     Indication: PARTIAL SEIZURES
     Dosage: DOUBLE BLIND
     Route: 048
     Dates: start: 20100108, end: 20100402
  2. BLINDED PLACEBO COMP-PLA+ [Suspect]
     Indication: PARTIAL SEIZURES
     Dosage: DOUBLE BLIND
     Route: 048
     Dates: start: 20100108, end: 20100402
  3. TRILEPTAL [Suspect]
     Indication: PARTIAL SEIZURES
     Dosage: DOUBLE BLIND
     Route: 048
     Dates: start: 20100108, end: 20100402
  4. SELENICA-R [Concomitant]
  5. MYSTAN [Concomitant]

REACTIONS (9)
  - DIZZINESS [None]
  - DRUG ERUPTION [None]
  - ERYTHEMA [None]
  - GENERALISED ERYTHEMA [None]
  - INFLAMMATION [None]
  - PRURITUS [None]
  - PYREXIA [None]
  - RASH [None]
  - SOMNOLENCE [None]
